FAERS Safety Report 15543073 (Version 4)
Quarter: 2018Q4

REPORT INFORMATION
  Report Type: Spontaneous
  Country: CA (occurrence: CA)
  Receive Date: 20181023
  Receipt Date: 20181101
  Transmission Date: 20190205
  Serious: Yes (Other)
  Sender: FDA-Public Use
  Company Number: CA-PFIZER INC-2018428680

PATIENT
  Sex: Male

DRUGS (2)
  1. ELIQUIS [Interacting]
     Active Substance: APIXABAN
     Indication: CEREBROVASCULAR ACCIDENT PROPHYLAXIS
     Dosage: UNK
     Dates: start: 201802, end: 20181013
  2. FRAGMIN [Suspect]
     Active Substance: DALTEPARIN SODIUM
     Dosage: 15000 IU, UNK
     Dates: start: 20181015

REACTIONS (10)
  - Hernia [Unknown]
  - Headache [Recovered/Resolved]
  - Anxiety [Unknown]
  - Transient ischaemic attack [Unknown]
  - Dysarthria [Unknown]
  - Feeling abnormal [Unknown]
  - Vision blurred [Unknown]
  - Balance disorder [Unknown]
  - Gait disturbance [Recovered/Resolved]
  - Drug interaction [Unknown]

NARRATIVE: CASE EVENT DATE: 201810
